FAERS Safety Report 12885356 (Version 1)
Quarter: 2016Q4

REPORT INFORMATION
  Report Type: Spontaneous
  Country: GB (occurrence: GB)
  Receive Date: 20161026
  Receipt Date: 20161026
  Transmission Date: 20170207
  Serious: Yes (Other)
  Sender: FDA-Public Use
  Company Number: GB-MYLANLABS-2016M1045352

PATIENT

DRUGS (1)
  1. SIMVASTATIN. [Suspect]
     Active Substance: SIMVASTATIN
     Dosage: 40 MG, QD
     Route: 048
     Dates: start: 20150110, end: 20160410

REACTIONS (5)
  - Malaise [Unknown]
  - Diarrhoea [Recovered/Resolved with Sequelae]
  - Abnormal loss of weight [Unknown]
  - Vomiting [Unknown]
  - Malabsorption [Recovered/Resolved with Sequelae]

NARRATIVE: CASE EVENT DATE: 20150310
